FAERS Safety Report 18861503 (Version 1)
Quarter: 2021Q1

REPORT INFORMATION
  Report Type: Report from Study
  Country: GB (occurrence: GB)
  Receive Date: 20210208
  Receipt Date: 20210208
  Transmission Date: 20210420
  Serious: Yes (Hospitalization, Other)
  Sender: FDA-Public Use
  Company Number: NVSC2020GB090547

PATIENT
  Sex: Male

DRUGS (1)
  1. HYRIMOZ [Suspect]
     Active Substance: ADALIMUMAB-ADAZ
     Indication: RHEUMATOID ARTHRITIS
     Dosage: 1 DF (40 MG), Q2W
     Route: 058
     Dates: start: 20200221

REACTIONS (9)
  - Product dose omission issue [Unknown]
  - Pain [Unknown]
  - Arthropathy [Recovering/Resolving]
  - Rheumatoid arthritis [Unknown]
  - Insomnia [Unknown]
  - Myocardial infarction [Unknown]
  - Memory impairment [Unknown]
  - Fatigue [Unknown]
  - Atrial fibrillation [Unknown]
